FAERS Safety Report 13023390 (Version 2)
Quarter: 2017Q1

REPORT INFORMATION
  Report Type: Spontaneous
  Country: JP (occurrence: JP)
  Receive Date: 20161213
  Receipt Date: 20170106
  Transmission Date: 20170428
  Serious: Yes (Death, Other)
  Sender: FDA-Public Use
  Company Number: JP-ASTELLAS-2016JP021361AA

PATIENT
  Age: 63 Year
  Sex: Male
  Weight: 49 kg

DRUGS (27)
  1. CELLCEPT [Concomitant]
     Active Substance: MYCOPHENOLATE MOFETIL\MYCOPHENOLATE MOFETIL HYDROCHLORIDE
     Indication: LIVER TRANSPLANT
     Route: 048
     Dates: start: 20161115, end: 20161205
  2. LACTULOSE. [Concomitant]
     Active Substance: LACTULOSE
     Indication: LIVER TRANSPLANT
     Route: 048
     Dates: start: 20161116, end: 20161205
  3. PROGRAF [Suspect]
     Active Substance: TACROLIMUS\TACROLIMUS ANHYDROUS
     Indication: LIVER TRANSPLANT
     Dosage: 1.6 MG, ONCE DAILY, AT NIGHT
     Route: 048
     Dates: start: 20161114, end: 20161114
  4. PROGRAF [Suspect]
     Active Substance: TACROLIMUS\TACROLIMUS ANHYDROUS
     Route: 048
     Dates: start: 20161127, end: 20161128
  5. HANP [Concomitant]
     Active Substance: CARPERITIDE
     Indication: LIVER TRANSPLANT
     Dosage: 300 MCG, ONCE DAILY
     Route: 041
     Dates: start: 20161120, end: 20161205
  6. URSO [Concomitant]
     Active Substance: URSODIOL
     Indication: LIVER TRANSPLANT
     Route: 048
     Dates: start: 20161115, end: 20161205
  7. PROGRAF [Suspect]
     Active Substance: TACROLIMUS\TACROLIMUS ANHYDROUS
     Dosage: 1.4 MG IN THE MORNING, 1.6 MG AT NIGHT
     Route: 048
     Dates: start: 20161115, end: 20161115
  8. PROGRAF [Suspect]
     Active Substance: TACROLIMUS\TACROLIMUS ANHYDROUS
     Dosage: 0.6 MG,  TWICE DAILY, IN THE MORNING AND AT NIGHT
     Route: 048
     Dates: start: 20161119, end: 20161119
  9. PROGRAF [Suspect]
     Active Substance: TACROLIMUS\TACROLIMUS ANHYDROUS
     Dosage: 0.8 MG, TWICE DAILY
     Route: 048
     Dates: start: 20161120, end: 20161120
  10. PROGRAF [Suspect]
     Active Substance: TACROLIMUS\TACROLIMUS ANHYDROUS
     Dosage: 0.6 MG, TWICE DAILY
     Route: 048
     Dates: start: 20161122, end: 20161126
  11. FRESH FROZEN PLASMA [Concomitant]
     Active Substance: HUMAN PLASMA
     Indication: TRANSFUSION
     Dosage: UNK UNK, UNKNOWN FREQ.
     Route: 065
     Dates: start: 20161114, end: 20161205
  12. PROGRAF [Suspect]
     Active Substance: TACROLIMUS\TACROLIMUS ANHYDROUS
     Dosage: 1.4 MG IN THE MORNING, ONCE DAILY
     Route: 048
     Dates: start: 20161116, end: 20161116
  13. PROGRAF [Suspect]
     Active Substance: TACROLIMUS\TACROLIMUS ANHYDROUS
     Route: 048
     Dates: start: 20161202, end: 20161202
  14. PROGRAF [Suspect]
     Active Substance: TACROLIMUS\TACROLIMUS ANHYDROUS
     Route: 048
     Dates: start: 20161204, end: 20161204
  15. PROGRAF [Suspect]
     Active Substance: TACROLIMUS\TACROLIMUS ANHYDROUS
     Dosage: 0.8 MG, ONCE DAILY
     Route: 048
     Dates: start: 20161118, end: 20161118
  16. PROGRAF [Suspect]
     Active Substance: TACROLIMUS\TACROLIMUS ANHYDROUS
     Route: 048
     Dates: start: 20161201, end: 20161201
  17. PROGRAF [Suspect]
     Active Substance: TACROLIMUS\TACROLIMUS ANHYDROUS
     Dosage: 2 MG , IN THE MORNING, 1.8 MG AT NIGHT
     Route: 048
     Dates: start: 20161203, end: 20161203
  18. OMEPRAL                            /00661201/ [Concomitant]
     Active Substance: OMEPRAZOLE
     Indication: LIVER TRANSPLANT
     Route: 042
     Dates: start: 20161125, end: 20161205
  19. SOL-MELCORT [Concomitant]
     Active Substance: METHYLPREDNISOLONE SODIUM SUCCINATE
     Indication: LIVER TRANSPLANT
     Route: 042
     Dates: start: 20161114, end: 20161205
  20. PROGRAF [Suspect]
     Active Substance: TACROLIMUS\TACROLIMUS ANHYDROUS
     Dosage: 1 MG IN THE MORNING, ONCE DAILY
     Route: 048
     Dates: start: 20161205, end: 20161205
  21. TIENAM [Concomitant]
     Active Substance: CILASTATIN SODIUM\IMIPENEM
     Indication: LIVER TRANSPLANT
     Dosage: 0.5 G, THRICE DAILY
     Route: 041
     Dates: start: 20161126, end: 20161205
  22. PLATELETS [Concomitant]
     Active Substance: HUMAN PLATELET, ALLOGENIC
     Indication: TRANSFUSION
     Dosage: UNK UNK, UNKNOWN FREQ.
     Route: 065
     Dates: start: 20161114, end: 20161205
  23. PROGRAF [Suspect]
     Active Substance: TACROLIMUS\TACROLIMUS ANHYDROUS
     Dosage: 0.8 MG AT NIGHT, ONCE DAILY
     Route: 048
     Dates: start: 20161117, end: 20161117
  24. PROGRAF [Suspect]
     Active Substance: TACROLIMUS\TACROLIMUS ANHYDROUS
     Dosage: 0.8 MG, ONCE DAILY
     Route: 048
     Dates: start: 20161121, end: 20161121
  25. RED BLOOD CELLS, CONCENTRATED [Concomitant]
     Active Substance: HUMAN RED BLOOD CELL
     Indication: TRANSFUSION
     Dosage: UNK UNK, UNKNOWN FREQ.
     Route: 065
     Dates: start: 20161114, end: 20161205
  26. PROGRAF [Suspect]
     Active Substance: TACROLIMUS\TACROLIMUS ANHYDROUS
     Route: 048
     Dates: start: 20161129, end: 20161129
  27. PROGRAF [Suspect]
     Active Substance: TACROLIMUS\TACROLIMUS ANHYDROUS
     Route: 048
     Dates: start: 20161130, end: 20161130

REACTIONS (1)
  - Ventricular fibrillation [Fatal]

NARRATIVE: CASE EVENT DATE: 20161205
